FAERS Safety Report 10073458 (Version 1)
Quarter: 2014Q2

REPORT INFORMATION
  Report Type: Spontaneous
  Country: JP (occurrence: JP)
  Receive Date: 20140411
  Receipt Date: 20140411
  Transmission Date: 20141212
  Serious: Yes (Hospitalization, Other)
  Sender: FDA-Public Use
  Company Number: JP-WATSON-2014-06762

PATIENT
  Age: 74 Year
  Sex: Female

DRUGS (9)
  1. ISONIAZID [Suspect]
     Indication: TUBERCULOUS PLEURISY
     Dosage: 300 MG, DAILY
     Route: 065
  2. LEVODOPA [Interacting]
     Indication: DEMENTIA WITH LEWY BODIES
     Dosage: 450 MG, DAILY
     Route: 065
  3. LEVODOPA [Interacting]
     Dosage: 50 MG, SINGLE
     Route: 030
  4. LEVODOPA [Interacting]
     Dosage: 600 MG, DAILY
     Route: 065
  5. CABERGOLINE [Concomitant]
     Indication: DEMENTIA WITH LEWY BODIES
     Dosage: 1 MG, DAILY
     Route: 065
  6. CABERGOLINE [Concomitant]
     Dosage: 1.25 MG, DAILY
     Route: 065
  7. PRAMIPEXOLE [Concomitant]
     Indication: DEMENTIA WITH LEWY BODIES
     Dosage: 0.375 MG, DAILY
     Route: 065
  8. ETHAMBUTOL [Concomitant]
     Indication: TUBERCULOUS PLEURISY
     Dosage: 500 MG, DAILY
     Route: 065
  9. RIFAMPICIN [Concomitant]
     Indication: TUBERCULOUS PLEURISY
     Dosage: 450 MG, DAILY
     Route: 065

REACTIONS (3)
  - Aphagia [Recovered/Resolved]
  - Parkinsonism [Recovered/Resolved]
  - Drug interaction [Recovered/Resolved]
